FAERS Safety Report 9601743 (Version 2)
Quarter: 2013Q4

REPORT INFORMATION
  Report Type: Spontaneous
  Country: US (occurrence: US)
  Receive Date: 20131007
  Receipt Date: 20131022
  Transmission Date: 20140711
  Serious: Yes (Other)
  Sender: FDA-Public Use
  Company Number: US-RB-058554-13

PATIENT
  Sex: Male

DRUGS (2)
  1. MUCINEX CHILD COUGH CHERRY LIQUID [Suspect]
     Indication: PRODUCT USED FOR UNKNOWN INDICATION
     Dosage: DRUG LAST USED ON 02-OCT-2013
     Route: 048
     Dates: start: 20130930
  2. ALBUTEROL [Suspect]
     Indication: ASTHMA

REACTIONS (4)
  - Anxiety [Recovered/Resolved]
  - Palpitations [Recovered/Resolved]
  - Tremor [Recovered/Resolved]
  - Dizziness [Recovered/Resolved]
